FAERS Safety Report 4872987-4 (Version None)
Quarter: 2005Q4

REPORT INFORMATION
  Report Type: 
  Country: None (occurrence: None)
  Receive Date: 20051201
  Receipt Date: 20050804
  Transmission Date: 20060501
  Serious: No
  Sender: FDA-Public Use
  Company Number: 2005PV000860

PATIENT
  Age: 44 Year
  Sex: Female
  Weight: 127.0072 kg

DRUGS (8)
  1. BYETTA [Suspect]
     Indication: DIABETES MELLITUS NON-INSULIN-DEPENDENT
     Dosage: SEE IMAGE
     Route: 058
     Dates: start: 20050721
  2. LEVOTHYROXINE SODIUM [Concomitant]
  3. LEVOTHYROXINE SODIUM [Concomitant]
  4. CYTOMEL [Concomitant]
  5. FORAMET [Concomitant]
  6. AVANDIA [Concomitant]
  7. FLONASE [Concomitant]
  8. ZYRTEC [Concomitant]

REACTIONS (5)
  - INJECTION SITE BRUISING [None]
  - INJECTION SITE PRURITUS [None]
  - INJECTION SITE RASH [None]
  - NO REACTION ON PREVIOUS EXPOSURE TO DRUG [None]
  - WRONG TECHNIQUE IN DRUG USAGE PROCESS [None]
